FAERS Safety Report 6517667-4 (Version None)
Quarter: 2009Q4

REPORT INFORMATION
  Report Type: 
  Country: None (occurrence: None)
  Receive Date: 20091224
  Receipt Date: 20091223
  Transmission Date: 20100525
  Serious: Yes (Other)
  Sender: FDA-Public Use
  Company Number: US-ASTRAZENECA-2009UW03767

PATIENT
  Age: 387 Month
  Sex: Male
  Weight: 166.9 kg

DRUGS (11)
  1. SEROQUEL [Suspect]
     Indication: BIPOLAR DISORDER
     Route: 048
     Dates: start: 20040101, end: 20050101
  2. SEROQUEL [Suspect]
     Route: 048
     Dates: start: 20070101, end: 20090101
  3. GEODON [Concomitant]
     Dates: start: 20050101
  4. HALDOL [Concomitant]
     Dates: start: 20060101
  5. RISPERDAL [Concomitant]
     Dates: start: 20060101
  6. DEPAKOTE [Concomitant]
     Indication: BIPOLAR DISORDER
     Dates: start: 20050101
  7. LITHIUM CARBONATE [Concomitant]
     Indication: BIPOLAR DISORDER
     Dates: start: 20050101
  8. KLONOPIN [Concomitant]
     Indication: DEPRESSION
  9. EFFEXOR [Concomitant]
     Indication: DEPRESSION
  10. TRAZODONE HCL [Concomitant]
     Indication: DEPRESSION
     Dates: start: 20000101
  11. BUSPAR [Concomitant]
     Dates: start: 20090101

REACTIONS (7)
  - BLOOD CHOLESTEROL INCREASED [None]
  - GALLBLADDER OPERATION [None]
  - HYPERLIPIDAEMIA [None]
  - KETOACIDOSIS [None]
  - PANCREATITIS [None]
  - SUICIDE ATTEMPT [None]
  - TYPE 2 DIABETES MELLITUS [None]
